FAERS Safety Report 13621096 (Version 1)
Quarter: 2017Q2

REPORT INFORMATION
  Report Type: Report from Study
  Country: US (occurrence: US)
  Receive Date: 20170607
  Receipt Date: 20170607
  Transmission Date: 20170830
  Serious: Yes (Other)
  Sender: FDA-Public Use
  Company Number: US-CELGENEUS-USA-20170509621

PATIENT

DRUGS (2)
  1. DEXAMETHASONE ORAL [Suspect]
     Active Substance: DEXAMETHASONE
     Indication: CENTRAL NERVOUS SYSTEM LYMPHOMA
     Dosage: 40 MILLIGRAM
     Route: 048
  2. POMALYST [Suspect]
     Active Substance: POMALIDOMIDE
     Indication: CENTRAL NERVOUS SYSTEM LYMPHOMA
     Dosage: 5 MILLIGRAM
     Route: 048

REACTIONS (13)
  - Thrombocytopenia [Unknown]
  - Anaemia [Unknown]
  - Pneumonia [Unknown]
  - Rash maculo-papular [Unknown]
  - Central nervous system lymphoma [Unknown]
  - Hypoxia [Unknown]
  - Respiratory failure [Unknown]
  - Sepsis [Unknown]
  - Dyspnoea [Unknown]
  - Syncope [Unknown]
  - Neutropenia [Unknown]
  - Fatigue [Unknown]
  - Lymphopenia [Unknown]
